FAERS Safety Report 24079199 (Version 1)
Quarter: 2024Q3

REPORT INFORMATION
  Report Type: Spontaneous
  Country: ES (occurrence: ES)
  Receive Date: 20240711
  Receipt Date: 20240711
  Transmission Date: 20241016
  Serious: Yes (Hospitalization, Other)
  Sender: PFIZER
  Company Number: None

PATIENT
  Age: 78 Year
  Sex: Female

DRUGS (5)
  1. VINCRISTINE [Suspect]
     Active Substance: VINCRISTINE
     Indication: Follicular lymphoma
     Dosage: 1MG IV IN CYCLES (R-CVP SCHEDULE)
     Route: 042
     Dates: start: 20240430
  2. MABTHERA [Suspect]
     Active Substance: RITUXIMAB
     Indication: Follicular lymphoma
     Dosage: 1400MG IN CYCLES (R-CVP SCHEDULE)
     Route: 058
     Dates: start: 20240430
  3. CYCLOPHOSPHAMIDE [Suspect]
     Active Substance: CYCLOPHOSPHAMIDE
     Indication: Follicular lymphoma
     Dosage: 1,275MG IV IN CYCLES (R-CVP SCHEDULE)
     Route: 042
     Dates: start: 20240430
  4. PREDNISONE [Concomitant]
     Active Substance: PREDNISONE
     Indication: Prophylaxis
     Dosage: DAYS 1-5 OF EACH CYCLE
     Route: 048
     Dates: start: 20240430
  5. PREDNISONE [Concomitant]
     Active Substance: PREDNISONE
     Indication: Prophylaxis
     Dosage: 60MG PO IN THE MORNING ON DAYS 1-5 OF EACH CYCLE
     Route: 048
     Dates: start: 20240430

REACTIONS (3)
  - Escherichia bacteraemia [Recovered/Resolved]
  - Urinary tract infection [Recovered/Resolved]
  - Oropharyngeal candidiasis [Recovered/Resolved]

NARRATIVE: CASE EVENT DATE: 20240606
